FAERS Safety Report 20699672 (Version 1)
Quarter: 2022Q2

REPORT INFORMATION
  Report Type: Spontaneous
  Country: US (occurrence: US)
  Receive Date: 20220412
  Receipt Date: 20220412
  Transmission Date: 20220721
  Serious: Yes (Hospitalization)
  Sender: FDA-Public Use
  Company Number: US-ORG100016242-2022000552

PATIENT

DRUGS (1)
  1. EXPAREL [Suspect]
     Active Substance: BUPIVACAINE
     Indication: Postoperative analgesia
     Dosage: 6-7MG/KG
     Route: 065

REACTIONS (3)
  - Overdose [Recovered/Resolved]
  - Off label use [Recovered/Resolved]
  - Labelled drug-drug interaction medication error [Recovered/Resolved]
